FAERS Safety Report 22772512 (Version 6)
Quarter: 2025Q1

REPORT INFORMATION
  Report Type: Report from Study
  Country: US (occurrence: US)
  Receive Date: 20230801
  Receipt Date: 20250306
  Transmission Date: 20250409
  Serious: Yes (Other)
  Sender: NOVARTIS
  Company Number: US-002147023-NVSC2023US167335

PATIENT
  Sex: Male

DRUGS (1)
  1. KESIMPTA [Suspect]
     Active Substance: OFATUMUMAB
     Indication: Relapsing multiple sclerosis
     Route: 065
     Dates: start: 20230707

REACTIONS (9)
  - Erectile dysfunction [Not Recovered/Not Resolved]
  - Multiple sclerosis relapse [Recovering/Resolving]
  - Gait disturbance [Recovered/Resolved]
  - Muscular weakness [Unknown]
  - Contusion [Unknown]
  - Fall [Unknown]
  - Fatigue [Recovering/Resolving]
  - Headache [Unknown]
  - Inappropriate schedule of product administration [Unknown]
